FAERS Safety Report 24261998 (Version 2)
Quarter: 2024Q3

REPORT INFORMATION
  Report Type: Spontaneous
  Country: US (occurrence: US)
  Receive Date: 20240829
  Receipt Date: 20240924
  Transmission Date: 20241016
  Serious: Yes (Hospitalization)
  Sender: BRISTOL MYERS SQUIBB
  Company Number: US-BRISTOL-MYERS SQUIBB COMPANY-2024-133165

PATIENT
  Age: 75 Year
  Sex: Female
  Weight: 88.9 kg

DRUGS (5)
  1. LENALIDOMIDE [Suspect]
     Active Substance: LENALIDOMIDE
     Indication: Plasma cell myeloma
     Dosage: FREQ: DAILY DAYS 1-14, EVERY 21 DAYS
     Route: 048
     Dates: start: 20220818
  2. FERROUS SULFATE [Concomitant]
     Active Substance: FERROUS SULFATE
     Indication: Product used for unknown indication
     Route: 048
     Dates: start: 20210802
  3. VELCADE [Concomitant]
     Active Substance: BORTEZOMIB
     Indication: Product used for unknown indication
     Dates: start: 20211123
  4. DEXAMETHASONE [Concomitant]
     Active Substance: DEXAMETHASONE
     Indication: Product used for unknown indication
     Route: 048
     Dates: start: 20211123
  5. DARZALEX [Concomitant]
     Active Substance: DARATUMUMAB
     Indication: Product used for unknown indication
     Dosage: DOSE: 100MG/5ML
     Route: 042

REACTIONS (7)
  - Dehydration [Recovering/Resolving]
  - Blood potassium abnormal [Recovering/Resolving]
  - Blood sodium abnormal [Recovering/Resolving]
  - Fatigue [Recovering/Resolving]
  - Off label use [Unknown]
  - Red blood cell count decreased [Not Recovered/Not Resolved]
  - White blood cell count decreased [Not Recovered/Not Resolved]

NARRATIVE: CASE EVENT DATE: 20220827
